FAERS Safety Report 10052447 (Version 3)
Quarter: 2014Q2

REPORT INFORMATION
  Report Type: Report from Study
  Country: JP (occurrence: JP)
  Receive Date: 20140402
  Receipt Date: 20140522
  Transmission Date: 20141212
  Serious: Yes (Hospitalization, Other)
  Sender: FDA-Public Use
  Company Number: JP-ASTELLAS-2014JP002869

PATIENT
  Age: 84 Year
  Sex: Male

DRUGS (8)
  1. MIRABEGRON [Suspect]
     Indication: HYPERTONIC BLADDER
     Route: 048
     Dates: start: 20130220
  2. CHOLERIT [Concomitant]
     Indication: DYSLIPIDAEMIA
     Route: 048
  3. AMLODIN [Concomitant]
     Indication: HYPERTENSION
     Route: 048
  4. MICARDIS [Concomitant]
     Indication: HYPERTENSION
     Route: 048
  5. BAYASPIRIN [Concomitant]
     Indication: MYOCARDIAL ISCHAEMIA
     Route: 048
     Dates: end: 20131125
  6. BAYASPIRIN [Concomitant]
     Route: 048
     Dates: start: 20131228
  7. TAKEPRON [Concomitant]
     Indication: PROPHYLAXIS
     Route: 048
  8. HACHIMIJIOGAN [Concomitant]
     Indication: BENIGN PROSTATIC HYPERPLASIA
     Route: 048

REACTIONS (2)
  - Cerebral infarction [Recovering/Resolving]
  - Gastric cancer [Recovered/Resolved]
